FAERS Safety Report 8236656-5 (Version None)
Quarter: 2012Q1

REPORT INFORMATION
  Report Type: 
  Country: None (occurrence: None)
  Receive Date: 20120326
  Receipt Date: 20120326
  Transmission Date: 20120608
  Serious: Yes (Other)
  Sender: FDA-Public Use
  Company Number: None

PATIENT
  Sex: Female
  Weight: 90.7194 kg

DRUGS (2)
  1. ABILIFY [Suspect]
     Dosage: 15MG ONCE DAILY
  2. TRILEPTAL [Suspect]
     Dosage: 300MG TWICE DAILY
     Dates: start: 20110105

REACTIONS (9)
  - HAEMORRHAGE [None]
  - INSOMNIA [None]
  - NAUSEA [None]
  - VOMITING [None]
  - HEADACHE [None]
  - UNEVALUABLE EVENT [None]
  - GASTRIC DISORDER [None]
  - PYREXIA [None]
  - BACK PAIN [None]
